FAERS Safety Report 8926835 (Version 1)
Quarter: 2012Q4

REPORT INFORMATION
  Report Type: Report from Study
  Country: US (occurrence: US)
  Receive Date: 20121127
  Receipt Date: 20121127
  Transmission Date: 20130627
  Serious: Yes (Other)
  Sender: FDA-Public Use
  Company Number: US-ROCHE-1155645

PATIENT
  Age: 66 Year
  Sex: Male
  Weight: 100 kg

DRUGS (4)
  1. BEVACIZUMAB [Suspect]
     Indication: RENAL CELL CARCINOMA
     Dosage: cycle:28 days, dose:5 mg/kg over 30-90 mins on day 1 and 15
     Route: 042
     Dates: start: 20100104
  2. BEVACIZUMAB [Suspect]
     Dosage: cycle 3, Last dose administered on 01/Mar/2010
     Route: 042
  3. SORAFENIB [Suspect]
     Indication: RENAL CELL CARCINOMA
     Dosage: dose:200 mg on days 1-5, 8-12, 15-19, 22-26
     Route: 048
     Dates: start: 20100104
  4. SORAFENIB [Suspect]
     Dosage: cycle:3, last administered on 12/Mar/2010
     Route: 048

REACTIONS (2)
  - Skin ulcer [Recovered/Resolved]
  - Vasculitis [Unknown]
